FAERS Safety Report 5350939-8 (Version None)
Quarter: 2007Q2

REPORT INFORMATION
  Report Type: 
  Country: None (occurrence: None)
  Receive Date: 20070608
  Receipt Date: 20070530
  Transmission Date: 20071010
  Serious: Yes (Other)
  Sender: FDA-Public Use
  Company Number: JP-MERCK-0705USA04675

PATIENT
  Age: 53 Year
  Sex: Female

DRUGS (2)
  1. COZAAR [Suspect]
     Indication: HYPERTENSION
     Route: 048
     Dates: start: 20061020, end: 20070207
  2. ACINON [Concomitant]
     Indication: DYSPEPSIA
     Route: 048
     Dates: start: 20061206, end: 20070213

REACTIONS (1)
  - ALOPECIA AREATA [None]
